FAERS Safety Report 11680840 (Version 2)
Quarter: 2015Q4

REPORT INFORMATION
  Report Type: Spontaneous
  Country: US (occurrence: US)
  Receive Date: 20151029
  Receipt Date: 20151223
  Transmission Date: 20160304
  Serious: No
  Sender: FDA-Public Use
  Company Number: US-009507513-1510USA014366

PATIENT

DRUGS (1)
  1. JANUVIA [Suspect]
     Active Substance: SITAGLIPTIN PHOSPHATE
     Dosage: UNK
     Route: 048

REACTIONS (5)
  - Weight increased [Unknown]
  - Oral infection [Unknown]
  - Depression [Unknown]
  - Post-traumatic stress disorder [Unknown]
  - Blood glucose increased [Unknown]
